FAERS Safety Report 9935710 (Version 1)
Quarter: 2014Q1

REPORT INFORMATION
  Report Type: Spontaneous
  Country: US (occurrence: US)
  Receive Date: 20140228
  Receipt Date: 20140228
  Transmission Date: 20141002
  Serious: No
  Sender: FDA-Public Use
  Company Number: US-AMGEN-USASP2013083824

PATIENT
  Age: 17 Year
  Sex: Female

DRUGS (2)
  1. ENBREL [Suspect]
     Indication: RHEUMATOID ARTHRITIS
     Dosage: 50 MG, QWK
     Route: 065
     Dates: start: 20131122
  2. METHOTREXATE [Concomitant]
     Dosage: 6 PILLS OF UNKNOWN DOSAGE WEEKLY
     Dates: start: 201308

REACTIONS (1)
  - Injection site pain [Recovered/Resolved]
